FAERS Safety Report 22141152 (Version 1)
Quarter: 2023Q1

REPORT INFORMATION
  Report Type: Spontaneous
  Country: US (occurrence: None)
  Receive Date: 20230324
  Receipt Date: 20230324
  Transmission Date: 20230417
  Serious: Yes (Life-Threatening, Disabling)
  Sender: FDA-Public Use
  Company Number: None

PATIENT
  Age: 47 Year
  Sex: Female
  Weight: 90 kg

DRUGS (9)
  1. CAPLYTA [Suspect]
     Active Substance: LUMATEPERONE
     Indication: Bipolar II disorder
     Dosage: OTHER QUANTITY : 1 CAPSULE(S);?FREQUENCY : AT BEDTIME;?
     Route: 048
     Dates: start: 20221109, end: 20230309
  2. CAPLYTA [Suspect]
     Active Substance: LUMATEPERONE
     Indication: Bipolar disorder
  3. MELOXICAM [Concomitant]
     Active Substance: MELOXICAM
  4. TIZANIDINE [Concomitant]
     Active Substance: TIZANIDINE
  5. BUSPAR [Concomitant]
     Active Substance: BUSPIRONE HYDROCHLORIDE
  6. UNSPECIFIED INGREDIENT [Concomitant]
     Active Substance: UNSPECIFIED INGREDIENT
  7. VALIUM [Concomitant]
     Active Substance: DIAZEPAM
  8. Hibiscus tea [Concomitant]
  9. super beets chews [Concomitant]

REACTIONS (18)
  - Hypertension [None]
  - Constipation [None]
  - Intestinal obstruction [None]
  - Depression [None]
  - Anxiety [None]
  - Chest pain [None]
  - Palpitations [None]
  - Taste disorder [None]
  - Weight decreased [None]
  - Depression suicidal [None]
  - Rash [None]
  - Rash [None]
  - Scab [None]
  - Skin lesion [None]
  - Apathy [None]
  - Insomnia [None]
  - Abnormal dreams [None]
  - Withdrawal syndrome [None]

NARRATIVE: CASE EVENT DATE: 20230309
